FAERS Safety Report 24364620 (Version 3)
Quarter: 2024Q4

REPORT INFORMATION
  Report Type: Spontaneous
  Country: US (occurrence: US)
  Receive Date: 20240926
  Receipt Date: 20241223
  Transmission Date: 20250115
  Serious: Yes (Other)
  Sender: JOHNSON AND JOHNSON
  Company Number: US-JNJFOC-20240939685

PATIENT
  Age: 55 Year
  Sex: Female

DRUGS (17)
  1. OPSUMIT [Suspect]
     Active Substance: MACITENTAN
     Indication: Pulmonary arterial hypertension
     Route: 048
     Dates: end: 20240728
  2. ORENITRAM [Suspect]
     Active Substance: TREPROSTINIL
     Indication: Pulmonary arterial hypertension
     Route: 048
     Dates: start: 20240518, end: 20240519
  3. ORENITRAM [Suspect]
     Active Substance: TREPROSTINIL
     Route: 048
     Dates: start: 20240519, end: 20240601
  4. ORENITRAM [Suspect]
     Active Substance: TREPROSTINIL
     Route: 048
     Dates: start: 20240601, end: 20240602
  5. ORENITRAM [Suspect]
     Active Substance: TREPROSTINIL
     Route: 048
     Dates: start: 20240602, end: 20240602
  6. ORENITRAM [Suspect]
     Active Substance: TREPROSTINIL
     Dosage: 3 TABLETS OF 0.25 MG AND 1 TABLET OF 1 MG
     Route: 048
     Dates: start: 202406, end: 202406
  7. ORENITRAM [Suspect]
     Active Substance: TREPROSTINIL
     Dosage: 1 TABLET OF 1 MG AND 0.125 MG EACH AND 3 TABLETS OF 0.25 MG
     Route: 048
     Dates: start: 202406, end: 202406
  8. ORENITRAM [Suspect]
     Active Substance: TREPROSTINIL
     Dosage: 2 TABLETS OF 1 MG AND 1 TABLET OF 0.25 MG
     Route: 048
     Dates: start: 202406, end: 2024
  9. ORENITRAM [Suspect]
     Active Substance: TREPROSTINIL
     Dosage: 1 TABLET OF 2.5 MG AND 0.25 MG EACH
     Route: 048
     Dates: start: 2024, end: 202407
  10. ORENITRAM [Suspect]
     Active Substance: TREPROSTINIL
     Route: 048
     Dates: start: 202407, end: 202407
  11. ORENITRAM [Suspect]
     Active Substance: TREPROSTINIL
     Route: 048
     Dates: start: 202407, end: 202407
  12. ORENITRAM [Suspect]
     Active Substance: TREPROSTINIL
     Route: 048
     Dates: start: 202407, end: 202407
  13. ORENITRAM [Suspect]
     Active Substance: TREPROSTINIL
     Dosage: 1 TABLET OF 2.5 MG AND1 MG EACH
     Route: 048
     Dates: start: 202407, end: 20240802
  14. ORENITRAM [Suspect]
     Active Substance: TREPROSTINIL
     Route: 048
     Dates: start: 20240224, end: 20240728
  15. ORENITRAM [Suspect]
     Active Substance: TREPROSTINIL
     Route: 048
     Dates: start: 2024, end: 2024
  16. SILDENAFIL CITRATE [Suspect]
     Active Substance: SILDENAFIL CITRATE
     Indication: Pulmonary arterial hypertension
     Route: 048
     Dates: end: 20240728
  17. LETAIRIS [Concomitant]
     Active Substance: AMBRISENTAN

REACTIONS (11)
  - Bendopnoea [Recovered/Resolved]
  - Dyspnoea exertional [Recovered/Resolved]
  - Headache [Recovered/Resolved]
  - Nausea [Recovered/Resolved]
  - Diarrhoea [Recovered/Resolved]
  - Burning sensation [Recovered/Resolved]
  - Vomiting [Recovered/Resolved]
  - Product use issue [Unknown]
  - Malaise [Unknown]
  - Drug titration error [Unknown]
  - Malaise [Recovered/Resolved]

NARRATIVE: CASE EVENT DATE: 20240519
